FAERS Safety Report 14320454 (Version 1)
Quarter: 2017Q4

REPORT INFORMATION
  Report Type: Spontaneous
  Country: US (occurrence: US)
  Receive Date: 20171222
  Receipt Date: 20171222
  Transmission Date: 20180321
  Serious: No
  Sender: FDA-Public Use
  Company Number: US-HALOZYME THERAPEUTICS, INC.-2017-US-HYL-00992

PATIENT

DRUGS (3)
  1. LIDOCAINE. [Concomitant]
     Active Substance: LIDOCAINE
     Indication: CATARACT OPERATION
     Dosage: UNK
     Dates: start: 20170913, end: 20170913
  2. BUPIVACAINE                        /00330102/ [Concomitant]
     Active Substance: BUPIVACAINE
     Indication: CATARACT OPERATION
     Dosage: UNK
     Dates: start: 20170913, end: 20170913
  3. HYLENEX RECOMBINANT [Suspect]
     Active Substance: HYALURONIDASE (HUMAN RECOMBINANT)
     Indication: CATARACT OPERATION
     Dosage: 0.33 ML, 2X
     Route: 058
     Dates: start: 20170913, end: 20170913

REACTIONS (1)
  - Drug ineffective [Unknown]

NARRATIVE: CASE EVENT DATE: 20170913
